FAERS Safety Report 7037265-6 (Version None)
Quarter: 2010Q4

REPORT INFORMATION
  Report Type: 
  Country: None (occurrence: None)
  Receive Date: 20101011
  Receipt Date: 20100929
  Transmission Date: 20110411
  Serious: Yes (Other)
  Sender: FDA-Public Use
  Company Number: JP-ROCHE-731841

PATIENT
  Age: 61 Year
  Sex: Male

DRUGS (2)
  1. COPEGUS [Suspect]
     Dosage: DOSAGE IS UNCERTAIN.
     Route: 048
  2. PEG-INTRON [Suspect]
     Dosage: DOSAGE IS UNCERTAIN.
     Route: 058

REACTIONS (2)
  - MENINGITIS [None]
  - SEPSIS [None]
